FAERS Safety Report 21623385 (Version 2)
Quarter: 2022Q4

REPORT INFORMATION
  Report Type: Spontaneous
  Country: IE (occurrence: IE)
  Receive Date: 20221121
  Receipt Date: 20221130
  Transmission Date: 20230113
  Serious: No
  Sender: FDA-Public Use
  Company Number: IE-FERRINGPH-2022FE06153

PATIENT

DRUGS (1)
  1. FIRMAGON [Suspect]
     Active Substance: DEGARELIX ACETATE
     Indication: Product used for unknown indication
     Dosage: 240 MG, ONCE/SINGLE
     Route: 058
     Dates: start: 20221025

REACTIONS (2)
  - Hypertension [Unknown]
  - Dizziness [Unknown]
